FAERS Safety Report 24644459 (Version 2)
Quarter: 2024Q4

REPORT INFORMATION
  Report Type: Spontaneous
  Country: IL (occurrence: IL)
  Receive Date: 20241121
  Receipt Date: 20241224
  Transmission Date: 20250114
  Serious: Yes (Hospitalization)
  Sender: RIGEL PHARMACEUTICALS
  Company Number: IL-RIGEL PHARMACEUTICALS, INC.-20241100078

PATIENT
  Age: 44 Year
  Sex: Female

DRUGS (1)
  1. TAVALISSE [Suspect]
     Active Substance: FOSTAMATINIB
     Indication: Autoimmune haemolytic anaemia
     Dosage: 100 MG
     Route: 065

REACTIONS (3)
  - Chest discomfort [Unknown]
  - Troponin increased [Unknown]
  - Off label use [Unknown]
